FAERS Safety Report 5474842-8 (Version None)
Quarter: 2007Q4

REPORT INFORMATION
  Report Type: 
  Country: None (occurrence: None)
  Receive Date: 20071002
  Receipt Date: 20070926
  Transmission Date: 20080405
  Serious: Yes (Life-Threatening, Hospitalization)
  Sender: FDA-Public Use
  Company Number: DE-ASTRAZENECA-2007PK02005

PATIENT
  Age: 10925 Day
  Sex: Male

DRUGS (2)
  1. SEROQUEL [Suspect]
     Indication: DELUSIONAL DISORDER, PERSECUTORY TYPE
     Route: 048
     Dates: end: 20070808
  2. RISPERIDONE [Concomitant]
     Indication: DELUSIONAL DISORDER, PERSECUTORY TYPE
     Route: 048

REACTIONS (1)
  - PELVIC VENOUS THROMBOSIS [None]
